FAERS Safety Report 18466775 (Version 3)
Quarter: 2020Q4

REPORT INFORMATION
  Report Type: Other
  Country: US (occurrence: US)
  Receive Date: 20201105
  Receipt Date: 20201217
  Transmission Date: 20210114
  Serious: Yes (Other)
  Sender: FDA-Public Use
  Company Number: US-ROCHE-2708461

PATIENT
  Age: 64 Year
  Sex: Male

DRUGS (16)
  1. PROGRAF [Concomitant]
     Active Substance: TACROLIMUS
     Dosage: 2 CAPSULES IN THE MORNING AND 1 CAPSULE AT NIGHT;
     Route: 048
     Dates: start: 2007
  2. BABY ASPIRIN [Concomitant]
     Active Substance: ASPIRIN
     Indication: THROMBOSIS
     Dosage: ONE EVERY NIGHT
     Route: 048
     Dates: start: 2010
  3. SODIUM BICARBONATE. [Concomitant]
     Active Substance: SODIUM BICARBONATE
     Indication: PROTEIN TOTAL INCREASED
     Dosage: ONE IN THE MORNING AND ONE AT NIGHT
     Route: 048
     Dates: start: 202008
  4. LOSARTAN. [Concomitant]
     Active Substance: LOSARTAN
     Indication: HYPERTENSION
     Route: 048
     Dates: start: 2008
  5. CELLCEPT [Suspect]
     Active Substance: MYCOPHENOLATE MOFETIL\MYCOPHENOLATE MOFETIL HYDROCHLORIDE
     Indication: RENAL TRANSPLANT
     Dosage: CELLCEPT 250MG 2 CAPS BID
     Route: 065
     Dates: start: 2007
  6. TYLENOL [Concomitant]
     Active Substance: ACETAMINOPHEN
     Indication: PAIN
     Dosage: EXTRA STRENGTH
     Route: 048
     Dates: start: 2007
  7. ELIQUIS [Concomitant]
     Active Substance: APIXABAN
     Dosage: ONE PILL IN THE MORNING AND ONE AT NIGHT;
     Route: 048
     Dates: start: 20201204
  8. CELLCEPT [Suspect]
     Active Substance: MYCOPHENOLATE MOFETIL\MYCOPHENOLATE MOFETIL HYDROCHLORIDE
     Indication: PANCREAS TRANSPLANT
     Route: 048
  9. PERCOCET [Concomitant]
     Active Substance: ACETAMINOPHEN\OXYCODONE HYDROCHLORIDE
     Indication: PAIN
     Dosage: AS NEEDED, TYPICALLY 1-2/DAY
     Route: 048
     Dates: start: 20201115
  10. ELIQUIS [Concomitant]
     Active Substance: APIXABAN
     Indication: ANTICOAGULANT THERAPY
     Dosage: TWO PILLS TWICE A DAY
     Route: 048
     Dates: start: 20201127, end: 20201204
  11. CELLCEPT [Suspect]
     Active Substance: MYCOPHENOLATE MOFETIL\MYCOPHENOLATE MOFETIL HYDROCHLORIDE
     Dosage: 2 IN THE MORNING AND 2 AT NIGHT, 4 TOTAL IN A DAY
     Route: 048
     Dates: start: 2007
  12. TYLENOL [Concomitant]
     Active Substance: ACETAMINOPHEN
     Indication: HEADACHE
  13. PREDNISONE. [Concomitant]
     Active Substance: PREDNISONE
     Route: 048
     Dates: start: 2007
  14. GABAPENTIN. [Concomitant]
     Active Substance: GABAPENTIN
     Indication: NEURALGIA
     Route: 048
     Dates: start: 20201108
  15. GABAPENTIN. [Concomitant]
     Active Substance: GABAPENTIN
     Dosage: 2 TWICE A DAY
     Route: 048
  16. AMLODIPINE [Concomitant]
     Active Substance: AMLODIPINE BESYLATE
     Indication: HYPERTENSION
     Route: 048

REACTIONS (6)
  - Pain [Not Recovered/Not Resolved]
  - Thrombosis [Recovering/Resolving]
  - Protein total increased [Not Recovered/Not Resolved]
  - Overweight [Recovering/Resolving]
  - Intervertebral disc degeneration [Not Recovered/Not Resolved]
  - Swelling [Recovering/Resolving]

NARRATIVE: CASE EVENT DATE: 202008
